FAERS Safety Report 7025447-9 (Version None)
Quarter: 2010Q4

REPORT INFORMATION
  Report Type: 
  Country: None (occurrence: None)
  Receive Date: 20101001
  Receipt Date: 20100929
  Transmission Date: 20110411
  Serious: Yes (Hospitalization)
  Sender: FDA-Public Use
  Company Number: GXKR2009DE02524

PATIENT
  Age: 92 Year
  Sex: Female
  Weight: 85 kg

DRUGS (9)
  1. FUROSEMIDE (NGX) [Suspect]
     Indication: RENAL FAILURE
     Dosage: 40 MG, QD
     Route: 048
     Dates: start: 20080801
  2. ALDACTONE [Suspect]
     Indication: HYPERTENSION
     Dosage: 25 MG, QD
     Route: 048
     Dates: start: 20080901
  3. ATACAND [Suspect]
     Indication: HYPERTENSION
     Dosage: 16 MG, BID
     Route: 048
  4. CLEXANE [Suspect]
     Indication: PULMONARY EMBOLISM
     Dosage: 20 MG, QD
     Route: 058
     Dates: start: 20080901, end: 20081030
  5. PANTOPRAZOLE SODIUM [Concomitant]
     Indication: GASTROINTESTINAL HAEMORRHAGE
     Dosage: 40 MG, QD
     Route: 048
     Dates: start: 20080901
  6. NORVASC [Concomitant]
     Indication: HYPERTENSION
     Dosage: 5 MG, BID
     Route: 048
  7. ARICEPT [Concomitant]
     Indication: DEMENTIA
     Dosage: 5 MG, QD
     Route: 048
     Dates: start: 20080901
  8. EUNERPAN [Concomitant]
     Indication: DEMENTIA
     Dosage: 25 MG, QD
     Route: 048
     Dates: start: 20080901
  9. NULYTELY [Concomitant]
     Indication: CONSTIPATION

REACTIONS (3)
  - HAEMORRHAGE [None]
  - HYPERKALAEMIA [None]
  - HYPONATRAEMIA [None]
